FAERS Safety Report 5147696-7 (Version None)
Quarter: 2006Q4

REPORT INFORMATION
  Report Type: 
  Country: None (occurrence: None)
  Receive Date: 20061110
  Receipt Date: 20061101
  Transmission Date: 20070319
  Serious: Yes (Hospitalization)
  Sender: FDA-Public Use
  Company Number: US-JNJFOC-20060601738

PATIENT
  Sex: Female
  Weight: 50.5 kg

DRUGS (2)
  1. ORTHO EVRA [Suspect]
     Indication: OVARIAN CYST
     Route: 062
  2. ORTHO EVRA [Suspect]
     Indication: CONTRACEPTION
     Dosage: 3 WEEKS ON, 3 DAYS OFF
     Route: 062

REACTIONS (2)
  - DEEP VEIN THROMBOSIS [None]
  - PULMONARY EMBOLISM [None]
